FAERS Safety Report 7491542-3 (Version None)
Quarter: 2011Q2

REPORT INFORMATION
  Report Type: 
  Country: None (occurrence: None)
  Receive Date: 20110519
  Receipt Date: 20110506
  Transmission Date: 20111010
  Serious: Yes (Other)
  Sender: FDA-Public Use
  Company Number: US-ELI_LILLY_AND_COMPANY-US201103003760

PATIENT
  Sex: Female
  Weight: 63.492 kg

DRUGS (8)
  1. REMERON [Concomitant]
     Dosage: 15 MG, QD
  2. ZANTAC [Concomitant]
     Dosage: 75 MG, BID
  3. MIRALAX [Concomitant]
     Dosage: UNK, QOD
  4. LISINOPRIL [Concomitant]
     Dosage: 5 MG, QD
  5. CYMBALTA [Suspect]
     Dosage: 30 MG, QD
     Dates: start: 20101117, end: 20101230
  6. CYMBALTA [Suspect]
     Indication: DEPRESSION
     Dosage: 20 MG, QD
     Dates: start: 20100903, end: 20101116
  7. CYMBALTA [Suspect]
     Dosage: 20 MG, QD
     Dates: start: 20110101, end: 20110303
  8. CARBAMAZEPINE [Concomitant]
     Dosage: 200 MG, TID

REACTIONS (6)
  - BLOOD ALKALINE PHOSPHATASE INCREASED [None]
  - ACUTE PRERENAL FAILURE [None]
  - ASPARTATE AMINOTRANSFERASE INCREASED [None]
  - ALANINE AMINOTRANSFERASE INCREASED [None]
  - IRRITABILITY [None]
  - MOOD SWINGS [None]
